FAERS Safety Report 6186352-3 (Version None)
Quarter: 2009Q2

REPORT INFORMATION
  Report Type: 
  Country: None (occurrence: None)
  Receive Date: 20090511
  Receipt Date: 20090501
  Transmission Date: 20091009
  Serious: Yes (Other)
  Sender: FDA-Public Use
  Company Number: US-PFIZER INC-2008080744

PATIENT
  Sex: Female

DRUGS (5)
  1. LYRICA [Suspect]
  2. NEURONTIN [Suspect]
     Indication: PAIN
  3. MOTRIN [Concomitant]
  4. CALCIUM [Concomitant]
  5. TYLENOL [Concomitant]

REACTIONS (19)
  - BRUXISM [None]
  - CEREBRAL ISCHAEMIA [None]
  - ECZEMA VESICULAR [None]
  - ENTEROBACTER INFECTION [None]
  - FEELING DRUNK [None]
  - FRACTURED SACRUM [None]
  - HAEMORRHAGE [None]
  - INFLUENZA LIKE ILLNESS [None]
  - INTERVERTEBRAL DISC DEGENERATION [None]
  - OEDEMA PERIPHERAL [None]
  - ONYCHOMADESIS [None]
  - PAIN [None]
  - PSEUDOMONAS INFECTION [None]
  - PURPURA [None]
  - SKIN ATROPHY [None]
  - STAPHYLOCOCCAL INFECTION [None]
  - UTERINE DISORDER [None]
  - VAGINAL DISCHARGE [None]
  - VISUAL IMPAIRMENT [None]
